FAERS Safety Report 5626484-9 (Version None)
Quarter: 2008Q1

REPORT INFORMATION
  Report Type: 
  Country: None (occurrence: None)
  Receive Date: 20080214
  Receipt Date: 20080206
  Transmission Date: 20080703
  Serious: Yes (Other)
  Sender: FDA-Public Use
  Company Number: GB-TEVA-167289ISR

PATIENT
  Age: 32 Year
  Sex: Female
  Weight: 61 kg

DRUGS (1)
  1. TRIMETHOPRIM [Suspect]
     Route: 048
     Dates: start: 20080122

REACTIONS (3)
  - COLD SWEAT [None]
  - HALLUCINATION [None]
  - HOT FLUSH [None]
